FAERS Safety Report 10389073 (Version 1)
Quarter: 2014Q3

REPORT INFORMATION
  Report Type: Spontaneous
  Country: US (occurrence: US)
  Receive Date: 20140817
  Receipt Date: 20140817
  Transmission Date: 20150326
  Serious: Yes (Hospitalization, Other)
  Sender: FDA-Public Use
  Company Number: US-009507513-1408USA006749

PATIENT
  Sex: Male

DRUGS (2)
  1. ASPIRIN. [Concomitant]
     Active Substance: ASPIRIN
  2. TEMODAR [Suspect]
     Active Substance: TEMOZOLOMIDE
     Indication: BRAIN NEOPLASM MALIGNANT
     Dosage: ON AND OFF, SKIPPING 3 TO 6 WEEKS AT A TIME
     Route: 048
     Dates: start: 20140127, end: 20140704

REACTIONS (2)
  - Convulsion [Recovering/Resolving]
  - Glioblastoma [Recovering/Resolving]

NARRATIVE: CASE EVENT DATE: 2014
